FAERS Safety Report 8402000-3 (Version None)
Quarter: 2012Q2

REPORT INFORMATION
  Report Type: 
  Country: None (occurrence: None)
  Receive Date: 20120601
  Receipt Date: 20120521
  Transmission Date: 20120825
  Serious: Yes (Hospitalization, Congenital Anomaly, Other)
  Sender: FDA-Public Use
  Company Number: SE-PFIZER INC-2012129762

PATIENT
  Age: 1 Day
  Sex: Male

DRUGS (2)
  1. SERTRALINE HYDROCHLORIDE [Suspect]
     Dosage: 200 MG, DAILY UNTIL FERTILITY WEEK 15
     Route: 064
     Dates: end: 20111001
  2. ATARAX [Suspect]
     Dosage: 20 MG, AS NEEDED
     Route: 064

REACTIONS (2)
  - MATERNAL EXPOSURE TIMING UNSPECIFIED [None]
  - CLEFT LIP AND PALATE [None]
